FAERS Safety Report 7274365-X (Version None)
Quarter: 2011Q1

REPORT INFORMATION
  Report Type: 
  Country: None (occurrence: None)
  Receive Date: 20110201
  Receipt Date: 20110201
  Transmission Date: 20110831
  Serious: Yes (Other)
  Sender: FDA-Public Use
  Company Number: None

PATIENT
  Age: 60 Year
  Sex: Male
  Weight: 98.8842 kg

DRUGS (1)
  1. COLCRYS [Suspect]
     Indication: GOUT
     Dosage: 0.06 MG TWICE DAILY PO
     Route: 048
     Dates: start: 20110111, end: 20110124

REACTIONS (3)
  - NEUROPATHY PERIPHERAL [None]
  - INSOMNIA [None]
  - PRODUCT SUBSTITUTION ISSUE [None]
